FAERS Safety Report 12436419 (Version 1)
Quarter: 2016Q2

REPORT INFORMATION
  Report Type: Spontaneous
  Country: US (occurrence: US)
  Receive Date: 20160606
  Receipt Date: 20160606
  Transmission Date: 20160815
  Serious: No
  Sender: FDA-Public Use
  Company Number: US-AUROBINDO-AUR-APU-2016-00249

PATIENT
  Age: 71 Year
  Sex: Female
  Weight: 45.36 kg

DRUGS (4)
  1. VENLAFAXINE HYDROCHLORIDE QUALITEST [Suspect]
     Active Substance: VENLAFAXINE HYDROCHLORIDE
     Indication: DEPRESSION
     Dosage: 25 MG, ONCE A DAY
     Route: 048
  2. VENLAFAXINE HYDROCHLORIDE EXTENDED-RELEASE CAPSULES 37.5MG [Suspect]
     Active Substance: VENLAFAXINE HYDROCHLORIDE
     Indication: DEPRESSION
     Route: 065
  3. NEXIUM [Concomitant]
     Active Substance: ESOMEPRAZOLE MAGNESIUM
     Indication: GASTROOESOPHAGEAL REFLUX DISEASE
     Dosage: 40 MG, ONCE A DAY
     Route: 048
  4. LORAZEPAM. [Concomitant]
     Active Substance: LORAZEPAM
     Indication: ANXIETY
     Dosage: 1-3 TABLETS A DAY
     Route: 065

REACTIONS (6)
  - Nausea [None]
  - Paraesthesia [None]
  - Drug ineffective [Not Recovered/Not Resolved]
  - Depression [None]
  - Disease recurrence [None]
  - Drug dependence [None]

NARRATIVE: CASE EVENT DATE: 201510
